FAERS Safety Report 4621529-7 (Version None)
Quarter: 2005Q1

REPORT INFORMATION
  Report Type: 
  Country: None (occurrence: None)
  Receive Date: 20050328
  Receipt Date: 20031125
  Transmission Date: 20050727
  Serious: No
  Sender: FDA-Public Use
  Company Number: 9981

PATIENT
  Sex: 0

DRUGS (1)
  1. METHOTREXATE [Suspect]
     Dosage: 2.5 MG

REACTIONS (3)
  - HEPATOCELLULAR DAMAGE [None]
  - PETECHIAE [None]
  - THROMBOCYTOPENIA [None]
